FAERS Safety Report 6946925 (Version 1)
Quarter: 2020Q3

REPORT INFORMATION
  Report Type: Report from Study
  Country: BR (occurrence: BR)
  Receive Date: 20090320
  Receipt Date: 20090320
  Transmission Date: 20201104
  Serious: Yes (Other)
  Sender: FDA-Public Use
  Company Number: BR-ROCHE-620912

PATIENT
  Sex: Female
  Weight: 64 kg

DRUGS (1)
  1. IBANDRONIC ACID. [Suspect]
     Active Substance: IBANDRONIC ACID
     Indication: OSTEOPOROSIS
     Route: 048

REACTIONS (4)
  - Incontinence [Recovered/Resolved]
  - Urinary tract infection [Recovering/Resolving]
  - Amnesia [Not Recovered/Not Resolved]
  - Petit mal epilepsy [Recovering/Resolving]

NARRATIVE: CASE EVENT DATE: 20090201
